FAERS Safety Report 8400576-3 (Version None)
Quarter: 2012Q2

REPORT INFORMATION
  Report Type: 
  Country: None (occurrence: None)
  Receive Date: 20120531
  Receipt Date: 20110618
  Transmission Date: 20120825
  Serious: No
  Sender: FDA-Public Use
  Company Number: US-NOVEN-11US002659

PATIENT
  Age: 50 Year
  Sex: Male
  Weight: 81.633 kg

DRUGS (2)
  1. DAYTRANA [Suspect]
     Dosage: 10 MG, 2 PATCHES DAILY
     Dates: start: 20110617
  2. DAYTRANA [Suspect]
     Indication: ATTENTION DEFICIT/HYPERACTIVITY DISORDER
     Dosage: 10 MG, QD
     Route: 062
     Dates: start: 20110614, end: 20110616

REACTIONS (6)
  - PRODUCT QUALITY ISSUE [None]
  - DRUG ADMINISTRATION ERROR [None]
  - OFF LABEL USE [None]
  - DRUG PRESCRIBING ERROR [None]
  - DRUG EFFECT DECREASED [None]
  - WRONG TECHNIQUE IN DRUG USAGE PROCESS [None]
